FAERS Safety Report 8123918-5 (Version None)
Quarter: 2012Q1

REPORT INFORMATION
  Report Type: 
  Country: None (occurrence: None)
  Receive Date: 20120209
  Receipt Date: 20120201
  Transmission Date: 20120608
  Serious: Yes (Hospitalization, Other)
  Sender: FDA-Public Use
  Company Number: US-AMGEN-USASP2012006855

PATIENT
  Age: 69 Year
  Sex: Male

DRUGS (1)
  1. ENBREL [Suspect]
     Indication: POLYARTHRITIS
     Dosage: 50 MG, QWK
     Dates: start: 20110916, end: 20111101

REACTIONS (3)
  - SPINAL CORD COMPRESSION [None]
  - PAIN IN EXTREMITY [None]
  - LYMPHOMA [None]
